FAERS Safety Report 5160240-3 (Version None)
Quarter: 2006Q4

REPORT INFORMATION
  Report Type: 
  Country: None (occurrence: None)
  Receive Date: 20061129
  Receipt Date: 20060912
  Transmission Date: 20070319
  Serious: Yes (Other)
  Sender: FDA-Public Use
  Company Number: US-GLAXOSMITHKLINE-A0619893A

PATIENT
  Age: 94 Year
  Sex: Female

DRUGS (2)
  1. ADVAIR DISKUS 100/50 [Suspect]
     Indication: PNEUMONIA
     Dosage: 1PUFF UNKNOWN
     Route: 055
  2. BLOOD THINNER [Concomitant]

REACTIONS (1)
  - EYE HAEMORRHAGE [None]
